FAERS Safety Report 9276419 (Version 1)
Quarter: 2013Q2

REPORT INFORMATION
  Report Type: Spontaneous
  Country: FR (occurrence: FR)
  Receive Date: 20130507
  Receipt Date: 20130507
  Transmission Date: 20140414
  Serious: Yes (Life-Threatening, Hospitalization)
  Sender: FDA-Public Use
  Company Number: FR-GLAXOSMITHKLINE-B0888167A

PATIENT
  Age: 60 Year
  Sex: Male

DRUGS (2)
  1. AZANTAC [Suspect]
     Indication: PRODUCT USED FOR UNKNOWN INDICATION
     Dosage: 480MG PER DAY
     Route: 042
     Dates: start: 20130209, end: 20130209
  2. VFEND [Concomitant]
     Route: 048

REACTIONS (2)
  - Sinus bradycardia [Recovered/Resolved]
  - Cardiac arrest [Recovered/Resolved]
